FAERS Safety Report 21585871 (Version 1)
Quarter: 2022Q4

REPORT INFORMATION
  Report Type: Spontaneous
  Country: CN (occurrence: CN)
  Receive Date: 20221111
  Receipt Date: 20221111
  Transmission Date: 20230113
  Serious: Yes (Hospitalization, Other)
  Sender: FDA-Public Use
  Company Number: CN-009507513-2211CHN002044

PATIENT
  Age: 37 Year
  Sex: Male

DRUGS (2)
  1. CANCIDAS [Suspect]
     Active Substance: CASPOFUNGIN ACETATE
     Indication: Antifungal treatment
     Dosage: 140 MG, ONCE
     Route: 041
     Dates: start: 20220922, end: 20220922
  2. SODIUM CHLORIDE [Concomitant]
     Active Substance: SODIUM CHLORIDE
     Indication: Coccidioidomycosis
     Dosage: 100 ML, ONCE
     Route: 041
     Dates: start: 20220922, end: 20220922

REACTIONS (9)
  - Hallucination [Recovering/Resolving]
  - Pneumonia [Unknown]
  - Acute respiratory failure [Unknown]
  - Acute respiratory distress syndrome [Unknown]
  - Dysphoria [Unknown]
  - Hypertension [Unknown]
  - Dizziness [Unknown]
  - Sleep disorder [Unknown]
  - Mental disorder [Unknown]

NARRATIVE: CASE EVENT DATE: 20220922
